FAERS Safety Report 6558039-6 (Version None)
Quarter: 2010Q1

REPORT INFORMATION
  Report Type: 
  Country: None (occurrence: None)
  Receive Date: 20100127
  Receipt Date: 20100127
  Transmission Date: 20100710
  Serious: Yes (Hospitalization)
  Sender: FDA-Public Use
  Company Number: None

PATIENT
  Sex: Male

DRUGS (11)
  1. IXABEPILONE [Suspect]
     Dosage: 32 MG DAY 1, 8 + 15
  2. SUNITINIB [Suspect]
     Dosage: 37.5 MG STARTS ON DAY 8
  3. PRILOSEC [Concomitant]
  4. CELEBREX [Concomitant]
  5. VICODINE [Concomitant]
  6. MULTIPLE VITAMINS [Concomitant]
  7. CADUET [Concomitant]
  8. OSTEOBIFLEX [Concomitant]
  9. CRION [Concomitant]
  10. FIBER TABLETS [Concomitant]
  11. IBUPROFEN [Concomitant]

REACTIONS (11)
  - BLOOD UREA INCREASED [None]
  - FATIGUE [None]
  - GENERAL PHYSICAL HEALTH DETERIORATION [None]
  - HAEMOGLOBIN DECREASED [None]
  - HICCUPS [None]
  - HYPOPHAGIA [None]
  - HYPOTENSION [None]
  - INTESTINAL PERFORATION [None]
  - OXYGEN SATURATION DECREASED [None]
  - TACHYCARDIA [None]
  - WHITE BLOOD CELL COUNT DECREASED [None]
